FAERS Safety Report 19677302 (Version 3)
Quarter: 2021Q3

REPORT INFORMATION
  Report Type: Spontaneous
  Country: US (occurrence: US)
  Receive Date: 20210810
  Receipt Date: 20210929
  Transmission Date: 20211014
  Serious: No
  Sender: FDA-Public Use
  Company Number: US-JNJFOC-20210805245

PATIENT
  Age: 70 Year
  Sex: Male
  Weight: 205 kg

DRUGS (2)
  1. STELARA [Suspect]
     Active Substance: USTEKINUMAB
     Route: 058
  2. STELARA [Suspect]
     Active Substance: USTEKINUMAB
     Indication: CROHN^S DISEASE
     Route: 058
     Dates: start: 20210208

REACTIONS (3)
  - Drug delivery system issue [Unknown]
  - Product dose omission issue [Unknown]
  - Syringe issue [Unknown]
